FAERS Safety Report 5515165-8 (Version None)
Quarter: 2007Q4

REPORT INFORMATION
  Report Type: 
  Country: None (occurrence: None)
  Receive Date: 20071113
  Receipt Date: 20070125
  Transmission Date: 20080405
  Serious: No
  Sender: FDA-Public Use
  Company Number: A0637048A

PATIENT
  Age: 89 Year
  Sex: Male

DRUGS (4)
  1. COREG [Suspect]
     Dosage: 3.125MG VARIABLE DOSE
     Route: 048
     Dates: start: 20060901
  2. MONOPRIL [Concomitant]
  3. DIOXIN [Concomitant]
  4. BLOOD THINNER [Concomitant]

REACTIONS (4)
  - ASTHENIA [None]
  - DIZZINESS [None]
  - FATIGUE [None]
  - INSOMNIA [None]
